FAERS Safety Report 24238346 (Version 1)
Quarter: 2024Q3

REPORT INFORMATION
  Report Type: Report from Study
  Country: US (occurrence: US)
  Receive Date: 20240822
  Receipt Date: 20240822
  Transmission Date: 20241017
  Serious: Yes (Other)
  Sender: AURINIA PHARMACEUTICALS
  Company Number: US-OTSUKA PHARMACEUTICAL NETHERLANDS B.V.-AUR-006488

PATIENT
  Age: 38 Year
  Sex: Female

DRUGS (1)
  1. LUPKYNIS [Suspect]
     Active Substance: VOCLOSPORIN
     Indication: Lupus nephritis
     Dosage: 23.7 MILLIGRAM, BID
     Route: 048
     Dates: start: 20220718

REACTIONS (10)
  - Target skin lesion [Unknown]
  - Palpitations [Unknown]
  - Rash [Recovering/Resolving]
  - Fatigue [Unknown]
  - Nocturia [Unknown]
  - Nausea [Unknown]
  - Urine protein/creatinine ratio increased [Unknown]
  - Anxiety [Unknown]
  - Malaise [Unknown]
  - Increased tendency to bruise [Unknown]

NARRATIVE: CASE EVENT DATE: 20240501
